FAERS Safety Report 18693201 (Version 1)
Quarter: 2021Q1

REPORT INFORMATION
  Report Type: Spontaneous
  Country: ES (occurrence: ES)
  Receive Date: 20210104
  Receipt Date: 20210104
  Transmission Date: 20210419
  Serious: Yes (Other)
  Sender: FDA-Public Use
  Company Number: ES-GLAXOSMITHKLINE-ES2020256807

PATIENT
  Age: 67 Year
  Sex: Female

DRUGS (9)
  1. LAMISIL [Suspect]
     Active Substance: TERBINAFINE HYDROCHLORIDE
     Indication: SKIN CANDIDA
     Dosage: 1 DF, BID (FORMULATION: CREAM, 10 MG/G, 1 APLICACI?N / 12 H )
     Route: 061
     Dates: start: 20201102
  2. ELOCOM [Concomitant]
     Active Substance: MOMETASONE FUROATE
     Indication: SKIN CANDIDA
     Dosage: 1 DF, BID (1 MG/G1, APLICACION / 12 H )
     Route: 061
     Dates: start: 20201102
  3. ADENURIC [Suspect]
     Active Substance: FEBUXOSTAT
     Indication: GOUT
     Dosage: 80 MG
     Route: 048
     Dates: start: 20130613
  4. EBASTINA [Concomitant]
     Active Substance: EBASTINE
     Indication: PRURITUS
     Dosage: UNK
     Route: 065
  5. METFORMINA [Concomitant]
     Active Substance: METFORMIN HYDROCHLORIDE
     Indication: TYPE 2 DIABETES MELLITUS
     Dosage: (500 TABLETS)
     Route: 048
     Dates: start: 20170518
  6. ELECOR [Suspect]
     Active Substance: EPLERENONE
     Indication: OEDEMA
     Dosage: 50 MG, QD
     Route: 065
     Dates: start: 20060310, end: 20201102
  7. BELOKEN [Suspect]
     Active Substance: METOPROLOL TARTRATE
     Indication: CARDIAC FAILURE
     Dosage: 100 MG (500 TABLETS)
     Route: 048
     Dates: start: 20181123, end: 20201127
  8. HONGOSERIL [Suspect]
     Active Substance: ITRACONAZOLE
     Indication: SKIN CANDIDA
     Dosage: 100 MG, QD (18 CAPSULAS)
     Route: 065
     Dates: start: 20201102
  9. TRINOMIA [ASPIRIN\RAMIPRIL\SIMVASTATIN] [Suspect]
     Active Substance: ASPIRIN\RAMIPRIL\SIMVASTATIN
     Indication: DYSLIPIDAEMIA
     Dosage: 100/20/2,5 MG
     Route: 048
     Dates: start: 20190402, end: 20201127

REACTIONS (1)
  - Photosensitivity reaction [Unknown]

NARRATIVE: CASE EVENT DATE: 20201116
